FAERS Safety Report 6460766-6 (Version None)
Quarter: 2009Q4

REPORT INFORMATION
  Report Type: 
  Country: None (occurrence: None)
  Receive Date: 20091130
  Receipt Date: 20091117
  Transmission Date: 20100525
  Serious: Yes (Life-Threatening, Other)
  Sender: FDA-Public Use
  Company Number: JP-PFIZER INC-2008100668

PATIENT
  Age: 59 Year
  Sex: Male
  Weight: 73 kg

DRUGS (10)
  1. SUNITINIB MALATE [Suspect]
     Indication: RENAL CELL CARCINOMA
     Dosage: 50 MG, 1X/DAY
     Route: 048
     Dates: start: 20080909, end: 20091107
  2. NORVASC [Concomitant]
     Route: 048
  3. CODEINE PHOSPHATE [Concomitant]
     Route: 048
  4. MAG-LAX [Concomitant]
     Route: 048
  5. LOXONIN [Concomitant]
     Route: 048
  6. MUCOSTA [Concomitant]
     Route: 048
  7. DIOVANE [Concomitant]
     Route: 048
     Dates: start: 20080916
  8. MEDICON [Concomitant]
     Dosage: UNK
     Route: 048
     Dates: start: 20081021
  9. MITIGLINIDE [Concomitant]
     Dosage: UNK
     Route: 048
     Dates: start: 20081029
  10. VOLTAREN [Concomitant]
     Dosage: UNK
     Route: 054
     Dates: start: 20090105

REACTIONS (5)
  - BLOOD PRESSURE INCREASED [None]
  - CEREBRAL INFARCTION [None]
  - EPISTAXIS [None]
  - HAEMOTHORAX [None]
  - SUICIDE ATTEMPT [None]
